FAERS Safety Report 17977920 (Version 2)
Quarter: 2020Q3

REPORT INFORMATION
  Report Type: Report from Study
  Country: CA (occurrence: CA)
  Receive Date: 20200703
  Receipt Date: 20200707
  Transmission Date: 20201103
  Serious: Yes (Other)
  Sender: FDA-Public Use
  Company Number: CA-GLAXOSMITHKLINE-CA2020115362

PATIENT
  Age: 37 Year
  Sex: Female

DRUGS (12)
  1. NAPROXEN. [Concomitant]
     Active Substance: NAPROXEN
     Indication: AXIAL SPONDYLOARTHRITIS
     Dosage: 500 MG, BID
     Route: 065
  2. DICLOFENAC [Suspect]
     Active Substance: DICLOFENAC
     Dosage: 100 MG, QD
     Route: 065
  3. MELOXICAM. [Concomitant]
     Active Substance: MELOXICAM
     Indication: PRODUCT USED FOR UNKNOWN INDICATION
     Dosage: 7.5 MG, BID
     Route: 065
  4. DICLOFENAC [Suspect]
     Active Substance: DICLOFENAC
     Indication: PRODUCT USED FOR UNKNOWN INDICATION
     Dosage: 50 MG, BID
     Route: 048
  5. VITAMIN D [Concomitant]
     Active Substance: VITAMIN D NOS
     Indication: PRODUCT USED FOR UNKNOWN INDICATION
     Dosage: 2000 IU, QD
     Route: 065
  6. CELECOXIB. [Concomitant]
     Active Substance: CELECOXIB
     Indication: PRODUCT USED FOR UNKNOWN INDICATION
     Dosage: 200 MG, QD
     Route: 048
  7. DICLOFENAC [Suspect]
     Active Substance: DICLOFENAC
     Dosage: 10 MG, QD
     Route: 048
  8. CORTISON [Concomitant]
     Active Substance: CORTISONE ACETATE
     Indication: PRODUCT USED FOR UNKNOWN INDICATION
     Dosage: UNK
     Route: 058
  9. CIMZIA [Concomitant]
     Active Substance: CERTOLIZUMAB PEGOL
     Dosage: 400 MG, Q2W
     Route: 058
     Dates: start: 20200612, end: 20200612
  10. OTEZLA [Concomitant]
     Active Substance: APREMILAST
     Indication: PRODUCT USED FOR UNKNOWN INDICATION
     Dosage: UNK
     Route: 065
  11. DICLOFENAC [Suspect]
     Active Substance: DICLOFENAC
     Dosage: 50 MG, BID, PRN
     Route: 048
  12. CIMZIA [Concomitant]
     Active Substance: CERTOLIZUMAB PEGOL
     Indication: PRODUCT USED FOR UNKNOWN INDICATION
     Dosage: 400 MG, Q4W
     Route: 058

REACTIONS (43)
  - Cervical radiculopathy [Unknown]
  - Enthesopathy [Unknown]
  - Psoriasis [Recovering/Resolving]
  - Nail dystrophy [Unknown]
  - Neuralgia [Unknown]
  - Osteoarthritis [Unknown]
  - Neck pain [Unknown]
  - Central pain syndrome [Unknown]
  - Synovitis [Unknown]
  - Fatigue [Unknown]
  - Lymphadenopathy [Unknown]
  - Patellofemoral pain syndrome [Unknown]
  - Sleep disorder [Recovering/Resolving]
  - Soft tissue mass [Unknown]
  - Bursitis [Unknown]
  - Axial spondyloarthritis [Unknown]
  - Constipation [Unknown]
  - Arthralgia [Not Recovered/Not Resolved]
  - Concomitant disease aggravated [Unknown]
  - Renal impairment [Unknown]
  - Dandruff [Unknown]
  - Tenosynovitis [Unknown]
  - Hyperaesthesia [Unknown]
  - Grip strength decreased [Unknown]
  - Tendon pain [Unknown]
  - Abdominal distension [Unknown]
  - Dactylitis [Unknown]
  - Musculoskeletal stiffness [Not Recovered/Not Resolved]
  - Discomfort [Unknown]
  - Myofascial pain syndrome [Unknown]
  - Gait disturbance [Unknown]
  - Fibromyalgia [Unknown]
  - Lymph node pain [Unknown]
  - Paraesthesia [Unknown]
  - Mobility decreased [Unknown]
  - Chest pain [Unknown]
  - Intervertebral disc degeneration [Unknown]
  - Sacroiliitis [Unknown]
  - Back pain [Unknown]
  - Meralgia paraesthetica [Unknown]
  - Pain [Unknown]
  - Soft tissue injury [Unknown]
  - Drug ineffective [Unknown]
